FAERS Safety Report 25775021 (Version 2)
Quarter: 2025Q3

REPORT INFORMATION
  Report Type: Spontaneous
  Country: US (occurrence: US)
  Receive Date: 20250909
  Receipt Date: 20250918
  Transmission Date: 20251020
  Serious: Yes (Other)
  Sender: AIMMUNE
  Company Number: US-AIMMUNE THERAPEUTICS, INC.-2025AIMT00820

PATIENT

DRUGS (3)
  1. VOWST [Suspect]
     Active Substance: DONOR HUMAN STOOL SPORES (ETHANOL TREATED)
     Indication: Clostridium difficile infection
     Dosage: 4 CAPSULES, 1X/DAY FOR 3 DAYS
     Route: 048
     Dates: start: 20250826
  2. VOWST [Suspect]
     Active Substance: DONOR HUMAN STOOL SPORES (ETHANOL TREATED)
     Route: 048
     Dates: start: 202508, end: 202508
  3. CYCLIZINE HYDROCHLORIDE [Concomitant]
     Active Substance: CYCLIZINE HYDROCHLORIDE
     Indication: Product used for unknown indication

REACTIONS (10)
  - Clostridium difficile infection [Unknown]
  - Pain [Not Recovered/Not Resolved]
  - Headache [Not Recovered/Not Resolved]
  - Faeces discoloured [Not Recovered/Not Resolved]
  - Pyrexia [Not Recovered/Not Resolved]
  - Hypertension [Not Recovered/Not Resolved]
  - Incorrect dose administered [Not Recovered/Not Resolved]
  - Diarrhoea [Unknown]
  - Chills [Not Recovered/Not Resolved]
  - Constipation [Unknown]

NARRATIVE: CASE EVENT DATE: 20250827
